FAERS Safety Report 7720885-0 (Version None)
Quarter: 2011Q3

REPORT INFORMATION
  Report Type: 
  Country: None (occurrence: None)
  Receive Date: 20110825
  Receipt Date: 20110811
  Transmission Date: 20111222
  Serious: Yes (Life-Threatening, Hospitalization)
  Sender: FDA-Public Use
  Company Number: 15953466

PATIENT
  Age: 72 Year
  Sex: Male

DRUGS (4)
  1. PLACEBO [Suspect]
     Indication: EMBOLISM
     Dates: start: 20110701, end: 20110805
  2. ENOXAPARIN SODIUM [Suspect]
     Indication: EMBOLISM
  3. APIXABAN [Suspect]
     Indication: EMBOLISM
     Dosage: 5 MILLIGRAM 1 DAY
     Route: 047
     Dates: start: 20110708, end: 20110805
  4. WARFARIN SODIUM [Suspect]
     Indication: EMBOLISM
     Dosage: 8 MILLIGRAM 1 DAY
     Route: 048
     Dates: start: 20110708, end: 20110805

REACTIONS (1)
  - PULMONARY EMBOLISM [None]
